FAERS Safety Report 8126501-0 (Version None)
Quarter: 2012Q1

REPORT INFORMATION
  Report Type: 
  Country: None (occurrence: None)
  Receive Date: 20120209
  Receipt Date: 20110706
  Transmission Date: 20120608
  Serious: Yes (Hospitalization, Other)
  Sender: FDA-Public Use
  Company Number: PHHY2011FR115439

PATIENT
  Sex: Male
  Weight: 95 kg

DRUGS (8)
  1. IBUPROFEN [Suspect]
     Indication: ARTHRALGIA
     Dosage: 400 MG, QD
     Dates: start: 20110101, end: 20110302
  2. PLATELET AGGREGATION INHIBITORS [Concomitant]
  3. BETA ADRENERGIC BLOCKING DRUGS [Concomitant]
  4. ALISKIREN [Suspect]
     Indication: HYPERTENSION
     Dosage: 150 MG, UNK
     Dates: start: 20091013, end: 20110302
  5. ACETYLSALICYLIC ACID SRT [Concomitant]
  6. DIURETICS [Concomitant]
  7. ALISKIREN [Suspect]
     Indication: PROTEINURIA
  8. RAMIPRIL [Suspect]
     Indication: HYPERTENSION
     Dosage: 5 MG, QD
     Dates: start: 20090101, end: 20110302

REACTIONS (4)
  - BLOOD CREATININE INCREASED [None]
  - RHABDOMYOLYSIS [None]
  - RENAL FAILURE ACUTE [None]
  - HYPERKALAEMIA [None]
